FAERS Safety Report 14172926 (Version 1)
Quarter: 2017Q4

REPORT INFORMATION
  Report Type: Spontaneous
  Country: GB (occurrence: GB)
  Receive Date: 20171109
  Receipt Date: 20171109
  Transmission Date: 20180321
  Serious: Yes (Other)
  Sender: FDA-Public Use
  Company Number: GB-LEO PHARMA-305313

PATIENT
  Age: 70 Year
  Sex: Male
  Weight: 62 kg

DRUGS (1)
  1. PICATO [Suspect]
     Active Substance: INGENOL MEBUTATE
     Indication: ANGIOKERATOMA
     Route: 048
     Dates: start: 20171017, end: 20171017

REACTIONS (7)
  - Application site pain [Recovering/Resolving]
  - Application site discharge [Unknown]
  - Application site vesicles [Recovered/Resolved with Sequelae]
  - Incorrect route of drug administration [Unknown]
  - Application site inflammation [Unknown]
  - Product use in unapproved indication [Unknown]
  - Application site scab [Unknown]

NARRATIVE: CASE EVENT DATE: 20171017
